FAERS Safety Report 11299288 (Version 1)
Quarter: 2015Q3

REPORT INFORMATION
  Report Type: Spontaneous
  Country: US (occurrence: US)
  Receive Date: 20150722
  Receipt Date: 20150722
  Transmission Date: 20151125
  Serious: No
  Sender: FDA-Public Use
  Company Number: US-ELI LILLY AND COMPANY-US201209003424

PATIENT

DRUGS (1)
  1. HUMATROPE [Suspect]
     Active Substance: SOMATROPIN
     Indication: FAILURE TO THRIVE
     Dosage: 0.9 MG, QD

REACTIONS (1)
  - Injection site discharge [Unknown]
